FAERS Safety Report 18201291 (Version 1)
Quarter: 2020Q3

REPORT INFORMATION
  Report Type: Spontaneous
  Country: GB (occurrence: GB)
  Receive Date: 20200827
  Receipt Date: 20200827
  Transmission Date: 20201103
  Serious: Yes (Hospitalization)
  Sender: FDA-Public Use
  Company Number: GB-TEVA-2020-GB-1820214

PATIENT
  Age: 59 Year
  Sex: Female

DRUGS (6)
  1. VITAMIN B COMPOUND STRONG [Concomitant]
     Active Substance: NIACINAMIDE\PYRIDOXINE HYDROCHLORIDE\RIBOFLAVIN\THIAMINE HYDROCHLORIDE
     Dosage: 2 DF
  2. FOLIC ACID. [Concomitant]
     Active Substance: FOLIC ACID
     Dosage: 5 MG
  3. THIAMINE. [Concomitant]
     Active Substance: THIAMINE
     Dosage: 300 MG
  4. VENSIR XL PROLONGED RELEASE [Suspect]
     Active Substance: VENLAFAXINE HYDROCHLORIDE
     Dosage: 300 MG
  5. OMEPRAZOLE. [Suspect]
     Active Substance: OMEPRAZOLE
     Dosage: 20 MG
  6. PROPRANOLOL [Concomitant]
     Active Substance: PROPRANOLOL HYDROCHLORIDE
     Dosage: 80 MG

REACTIONS (7)
  - Seizure [Unknown]
  - Hemiparesis [Unknown]
  - Fall [Unknown]
  - Femoral neck fracture [Unknown]
  - Haemorrhagic stroke [Unknown]
  - Hyponatraemia [Unknown]
  - Confusional state [Unknown]
